FAERS Safety Report 14145087 (Version 2)
Quarter: 2018Q2

REPORT INFORMATION
  Report Type: Spontaneous
  Country: JP (occurrence: JP)
  Receive Date: 20171031
  Receipt Date: 20180411
  Transmission Date: 20180711
  Serious: Yes (Death, Other)
  Sender: FDA-Public Use
  Company Number: JP-PFIZER INC-2017371287

PATIENT
  Age: 62 Year
  Sex: Male
  Weight: 72.4 kg

DRUGS (8)
  1. DEXART [Concomitant]
     Active Substance: DEXAMETHASONE SODIUM PHOSPHATE
     Indication: VOMITING
     Dosage: 6.6 MG, 1X/DAY
     Route: 041
     Dates: start: 20160719, end: 20170711
  2. LEVOFLOXACIN. [Concomitant]
     Active Substance: LEVOFLOXACIN
     Indication: PYREXIA
     Dosage: 500 MG, 1X/DAY
     Route: 048
     Dates: start: 20170717, end: 20170719
  3. ZOFRAN [Concomitant]
     Active Substance: ONDANSETRON HYDROCHLORIDE
     Indication: VOMITING
     Dosage: 4 MG, 1X/DAY
     Route: 048
     Dates: start: 20160710, end: 20161104
  4. DOMPERIDONE [Concomitant]
     Active Substance: DOMPERIDONE
     Indication: VOMITING
     Dosage: 10 MG, 3X/DAY
     Route: 048
     Dates: start: 20160720, end: 20161104
  5. OXALIPLATIN 100MG/20ML HOSPIRA [Suspect]
     Active Substance: OXALIPLATIN
     Indication: RECTAL CANCER
     Dosage: 3600 MG, DAILY
     Route: 041
     Dates: start: 20160719, end: 20170627
  6. BEVACIZUMAB. [Concomitant]
     Active Substance: BEVACIZUMAB
     Indication: METASTASIS
     Dosage: 580 MG, 1X/DAY
     Route: 041
     Dates: start: 20170131, end: 20170627
  7. XELODA [Concomitant]
     Active Substance: CAPECITABINE
     Dosage: 1500 MG, 2X/DAY
     Route: 048
     Dates: start: 20160719, end: 20170711
  8. GRANISETRON [Concomitant]
     Active Substance: GRANISETRON
     Indication: VOMITING
     Dosage: 3 MG, 1X/DAY
     Route: 048
     Dates: start: 20160719, end: 20170627

REACTIONS (2)
  - Bone marrow failure [Unknown]
  - Interstitial lung disease [Fatal]

NARRATIVE: CASE EVENT DATE: 20170717
